FAERS Safety Report 17742607 (Version 2)
Quarter: 2021Q2

REPORT INFORMATION
  Report Type: Spontaneous
  Country: US (occurrence: US)
  Receive Date: 20200504
  Receipt Date: 20210409
  Transmission Date: 20210716
  Serious: No
  Sender: FDA-Public Use
  Company Number: US-SPECGX-T202000332

PATIENT
  Age: 88 Year
  Sex: Female
  Weight: 51 kg

DRUGS (5)
  1. TYLENOL [Suspect]
     Active Substance: ACETAMINOPHEN
     Indication: SLEEP DISORDER
     Dosage: UNK (TOOK 2 TYLENOL PM)
     Route: 065
  2. TYLENOL [Suspect]
     Active Substance: ACETAMINOPHEN
     Indication: PAIN
     Dosage: UNK (HALF OF A PILL PM)
     Route: 065
  3. LEVOTHYROXINE. [Concomitant]
     Active Substance: LEVOTHYROXINE
     Indication: HYPERTHYROIDISM
     Dosage: 25 MICROGRAM (EMPTY STOMACH)
     Route: 065
  4. RESTORIL [Suspect]
     Active Substance: TEMAZEPAM
     Dosage: 7.5 MILLIGRAM, QHS
     Route: 048
     Dates: start: 2020
  5. RESTORIL [Suspect]
     Active Substance: TEMAZEPAM
     Indication: INSOMNIA
     Dosage: 7.5 MILLIGRAM, QHS (ONE TIME DAILY AT BEDTIME)
     Route: 048
     Dates: start: 20200127, end: 2020

REACTIONS (8)
  - Weight increased [Unknown]
  - Drug ineffective [Unknown]
  - Abnormal dreams [Recovered/Resolved]
  - Pain in extremity [Unknown]
  - Nightmare [Unknown]
  - Fatigue [Unknown]
  - Body height decreased [Unknown]
  - Wrong technique in product usage process [Unknown]

NARRATIVE: CASE EVENT DATE: 2020
